FAERS Safety Report 10253477 (Version 2)
Quarter: 2014Q3

REPORT INFORMATION
  Report Type: Spontaneous
  Country: IT (occurrence: IT)
  Receive Date: 20140623
  Receipt Date: 20140706
  Transmission Date: 20150326
  Serious: Yes (Disabling)
  Sender: FDA-Public Use
  Company Number: IT-BRISTOL-MYERS SQUIBB COMPANY-21059209

PATIENT
  Age: 78 Year
  Sex: Female

DRUGS (10)
  1. CARDIRENE [Concomitant]
     Active Substance: ASPIRIN DL-LYSINE
     Route: 048
  2. VALPRESSION [Concomitant]
     Active Substance: VALSARTAN
     Dosage: 1DF = 25 X 160 MG IN BLISTER.?STR: 160MG
     Route: 048
  3. GLUCOPHAGE [Suspect]
     Active Substance: METFORMIN HYDROCHLORIDE
     Indication: DIABETES MELLITUS
     Dosage: 1DF = 40 X 850MG.?INTERRUPTED: 17JUN13.?RE-INTRODUCED
     Route: 048
     Dates: start: 20130101, end: 20130617
  4. LASIX [Concomitant]
     Active Substance: FUROSEMIDE
     Dosage: 1DF = 30 X 25 MG TABS
     Route: 048
  5. MONOKET [Concomitant]
     Active Substance: ISOSORBIDE MONONITRATE
     Dosage: 1DF = 30 X 40 MG TABS
     Route: 048
  6. NOVOMIX [Suspect]
     Active Substance: INSULIN ASPART
     Indication: DIABETES MELLITUS
     Dosage: 1DF = 70/30 ^100 U/ML PENFILL IN CARTRIDGE 1 X 3 ML
     Route: 058
     Dates: start: 20130101, end: 20130617
  7. DILATREND [Concomitant]
     Active Substance: CARVEDILOL
     Dosage: 1DF = 28 X 6.25 MG TABS
     Route: 048
  8. NOVORAPID [Suspect]
     Active Substance: INSULIN ASPART
     Indication: DIABETES MELLITUS
     Dosage: INTERRUPTED: 17JUN13.?1DF = 100 U/ML 1 VIAL X 10 ML INJECTION SOLUTION.?RE-INTRODUCED
     Route: 058
     Dates: start: 201301
  9. LANSOPRAZOLE. [Concomitant]
     Active Substance: LANSOPRAZOLE
     Route: 048
  10. LEVEMIR [Suspect]
     Active Substance: INSULIN DETEMIR
     Indication: DIABETES MELLITUS
     Dosage: INTERRUPTED: 17JUN13.?1DF = 100 UNITS/ML PENFILL IN CARTRIDGE 1 X 3 ML.?RE-INTRODUCED
     Route: 058
     Dates: start: 20130101

REACTIONS (1)
  - Hypoglycaemic coma [Recovering/Resolving]

NARRATIVE: CASE EVENT DATE: 20130616
